FAERS Safety Report 10402019 (Version 1)
Quarter: 2014Q3

REPORT INFORMATION
  Report Type: Report from Study
  Country: US (occurrence: US)
  Receive Date: 20140822
  Receipt Date: 20140822
  Transmission Date: 20150326
  Serious: Yes (Other)
  Sender: FDA-Public Use
  Company Number: US-ROCHE-1449280

PATIENT
  Age: 55 Year
  Sex: Female

DRUGS (4)
  1. SORAFENIB [Suspect]
     Active Substance: SORAFENIB
     Indication: METASTATIC NEOPLASM
     Route: 065
  2. BEVACIZUMAB [Suspect]
     Active Substance: BEVACIZUMAB
     Indication: METASTATIC NEOPLASM
     Route: 065
  3. CAPECITABINE [Suspect]
     Active Substance: CAPECITABINE
     Indication: METASTATIC NEOPLASM
     Route: 065
  4. GEMCITABINE [Suspect]
     Active Substance: GEMCITABINE\GEMCITABINE HYDROCHLORIDE
     Indication: METASTATIC NEOPLASM
     Route: 065

REACTIONS (8)
  - Hypertension [Recovering/Resolving]
  - Haematuria [Unknown]
  - Thrombotic microangiopathy [Unknown]
  - Renal failure acute [Unknown]
  - Haemolytic anaemia [Recovered/Resolved]
  - Thrombocytopenia [Unknown]
  - Renal injury [Unknown]
  - Proteinuria [Recovered/Resolved]
